FAERS Safety Report 10331386 (Version 3)
Quarter: 2016Q3

REPORT INFORMATION
  Report Type: Spontaneous
  Country: US (occurrence: US)
  Receive Date: 20140722
  Receipt Date: 20160922
  Transmission Date: 20161109
  Serious: Yes (Hospitalization, Other)
  Sender: FDA-Public Use
  Company Number: US-BAYER-2014-107154

PATIENT
  Age: 30 Year
  Sex: Female
  Weight: 79.37 kg

DRUGS (16)
  1. DEPAKOTE [Concomitant]
     Active Substance: DIVALPROEX SODIUM
  2. QVAR [Concomitant]
     Active Substance: BECLOMETHASONE DIPROPIONATE
  3. CLEOCIN [Concomitant]
     Active Substance: CLINDAMYCIN PHOSPHATE
  4. ATROVENT [Concomitant]
     Active Substance: IPRATROPIUM BROMIDE
  5. SEPTRA DS [Concomitant]
     Active Substance: SULFAMETHOXAZOLE\TRIMETHOPRIM
  6. ZITHROMAX [Concomitant]
     Active Substance: AZITHROMYCIN DIHYDRATE
     Indication: BRONCHITIS
  7. IBUPROFEN. [Concomitant]
     Active Substance: IBUPROFEN
     Indication: ARTHRALGIA
  8. KEFLEX [Concomitant]
     Active Substance: CEPHALEXIN
  9. MIRENA [Suspect]
     Active Substance: LEVONORGESTREL
     Indication: CONTRACEPTION
     Dosage: 20 MCG/24HR, CONT
     Route: 015
     Dates: start: 20071128, end: 20121206
  10. SINGULAIR [Concomitant]
     Active Substance: MONTELUKAST SODIUM
  11. ALBUTEROL. [Concomitant]
     Active Substance: ALBUTEROL
  12. PERCOCET [Concomitant]
     Active Substance: ACETAMINOPHEN\OXYCODONE HYDROCHLORIDE
     Indication: ARTHRALGIA
  13. VENTOLIN [Concomitant]
     Active Substance: ALBUTEROL SULFATE
  14. CEPHALEXIN. [Concomitant]
     Active Substance: CEPHALEXIN
     Dosage: 500 MG, UNK
  15. COLACE [Concomitant]
     Active Substance: DOCUSATE SODIUM
     Indication: ARTHRALGIA
  16. VANCOMYCIN [Concomitant]
     Active Substance: VANCOMYCIN

REACTIONS (14)
  - Embedded device [Not Recovered/Not Resolved]
  - Injury [Not Recovered/Not Resolved]
  - Depression [None]
  - Menorrhagia [None]
  - Dysmenorrhoea [None]
  - Feeling abnormal [None]
  - Device use issue [None]
  - Anxiety [None]
  - Medical device pain [Not Recovered/Not Resolved]
  - Procedural pain [Not Recovered/Not Resolved]
  - Device difficult to use [None]
  - Cystitis [None]
  - Device issue [None]
  - Post procedural discomfort [None]

NARRATIVE: CASE EVENT DATE: 201005
